FAERS Safety Report 6645186-3 (Version None)
Quarter: 2010Q1

REPORT INFORMATION
  Report Type: 
  Country: None (occurrence: None)
  Receive Date: 20100308
  Receipt Date: 20100222
  Transmission Date: 20100710
  Serious: No
  Sender: FDA-Public Use
  Company Number: 2010-00284

PATIENT
  Age: 65 Year
  Sex: Male
  Weight: 72.5755 kg

DRUGS (3)
  1. ZICAM COLD REMEDY NASAL GEL [Suspect]
     Dosage: QID -OFF/ON FOR A WEEK [2 YEARS AGO- 2 YEARS AGO]
  2. ZANTAC [Concomitant]
  3. SYNTHROID [Concomitant]

REACTIONS (1)
  - ANOSMIA [None]
